FAERS Safety Report 6842312-8 (Version None)
Quarter: 2010Q3

REPORT INFORMATION
  Report Type: 
  Country: None (occurrence: None)
  Receive Date: 20100714
  Receipt Date: 20070725
  Transmission Date: 20110219
  Serious: No
  Sender: FDA-Public Use
  Company Number: US-PFIZER INC-2007062926

PATIENT
  Sex: Male
  Weight: 88.636 kg

DRUGS (9)
  1. CHANTIX [Suspect]
     Indication: SMOKING CESSATION THERAPY
     Dates: start: 20070703
  2. SPIRIVA [Concomitant]
  3. ADVAIR DISKUS 100/50 [Concomitant]
     Indication: CHRONIC OBSTRUCTIVE PULMONARY DISEASE
  4. NASACORT [Concomitant]
     Indication: CHRONIC OBSTRUCTIVE PULMONARY DISEASE
  5. HYDROCODONE [Concomitant]
     Indication: ARTHROPATHY
  6. MONTELUKAST SODIUM [Concomitant]
  7. PREVACID [Concomitant]
  8. REQUIP [Concomitant]
     Indication: RESTLESS LEGS SYNDROME
  9. BENZONATATE [Concomitant]
     Indication: COUGH

REACTIONS (1)
  - NAUSEA [None]
